FAERS Safety Report 20431116 (Version 1)
Quarter: 2022Q1

REPORT INFORMATION
  Report Type: Spontaneous
  Country: US (occurrence: None)
  Receive Date: 20220203
  Receipt Date: 20220203
  Transmission Date: 20220423
  Serious: Yes (Hospitalization)
  Sender: FDA-Public Use
  Company Number: None

PATIENT
  Sex: Male

DRUGS (1)
  1. NIVESTYM [Suspect]
     Active Substance: FILGRASTIM-AAFI
     Indication: Acute lymphocytic leukaemia
     Dosage: OTHER QUANTITY : 300MCG;?OTHER FREQUENCY : 14 DAYS 21 DAY CYC;?
     Route: 058
     Dates: start: 202202

REACTIONS (1)
  - Hospitalisation [None]
